FAERS Safety Report 8605675-9 (Version None)
Quarter: 2012Q3

REPORT INFORMATION
  Report Type: 
  Country: None (occurrence: None)
  Receive Date: 20120820
  Receipt Date: 20120809
  Transmission Date: 20120928
  Serious: Yes (Death)
  Sender: FDA-Public Use
  Company Number: GB-ROCHE-1079519

PATIENT
  Sex: Male
  Weight: 79.087 kg

DRUGS (16)
  1. LANSOPRAZOLE [Concomitant]
     Dates: start: 20120127
  2. TARGINACT [Concomitant]
     Dates: start: 20120127
  3. LUCENTIS [Suspect]
     Indication: AGE-RELATED MACULAR DEGENERATION
     Dates: start: 20111026
  4. SIMPLE LINCTUS [Concomitant]
     Dates: start: 20120127
  5. ASPIRIN [Concomitant]
     Dates: start: 20120127
  6. SENNA [Concomitant]
     Dates: start: 20120127
  7. LACTULOSE [Concomitant]
     Dates: start: 20120127
  8. DEXAMETHASONE [Concomitant]
     Dates: start: 20120127
  9. BETAHISTINE [Concomitant]
     Dates: start: 20120127
  10. TRIMETHOPRIM [Concomitant]
     Dates: start: 20120127
  11. LATANOPROST [Concomitant]
     Dosage: 50 MCG/ML
     Dates: start: 20120127
  12. ZOPICLONE [Concomitant]
     Dates: start: 20120127
  13. BICALUTAMIDE [Concomitant]
     Dates: start: 20120127
  14. PREGABALIN [Concomitant]
     Dates: start: 20120127
  15. ACETAMINOPHEN [Concomitant]
     Dates: start: 20120127
  16. FUROSEMIDE [Concomitant]
     Dates: start: 20120127

REACTIONS (2)
  - METASTASES TO BONE [None]
  - NEOPLASM PROSTATE [None]
